FAERS Safety Report 7776993-1 (Version None)
Quarter: 2011Q3

REPORT INFORMATION
  Report Type: 
  Country: None (occurrence: None)
  Receive Date: 20110926
  Receipt Date: 20110926
  Transmission Date: 20111222
  Serious: Yes (Other)
  Sender: FDA-Public Use
  Company Number: None

PATIENT
  Age: 6 Year
  Sex: Female
  Weight: 30.39 kg

DRUGS (2)
  1. SINGULAIR [Suspect]
     Indication: SEASONAL ALLERGY
     Dosage: 5MG
     Route: 048
     Dates: start: 20110809, end: 20110922
  2. SINGULAIR [Suspect]
     Indication: EPISTAXIS
     Dosage: 5MG
     Route: 048
     Dates: start: 20110809, end: 20110922

REACTIONS (1)
  - HALLUCINATION, AUDITORY [None]
